FAERS Safety Report 15740977 (Version 3)
Quarter: 2019Q1

REPORT INFORMATION
  Report Type: Spontaneous
  Country: IS (occurrence: IS)
  Receive Date: 20181219
  Receipt Date: 20190131
  Transmission Date: 20190417
  Serious: Yes (Hospitalization, Other)
  Sender: FDA-Public Use
  Company Number: IS-SA-2018SA342386

PATIENT
  Age: 60 Year
  Sex: Female

DRUGS (5)
  1. METOPROLOL SALT NOT SPECIFIED [Suspect]
     Active Substance: METOPROLOL
     Dosage: UNK
  2. ACETYLSALICYLIC ACID [Suspect]
     Active Substance: ASPIRIN
     Dosage: UNK
  3. ENOXAPARIN SODIUM. [Suspect]
     Active Substance: ENOXAPARIN SODIUM
     Dosage: UNK
  4. NORADRENALINE HYDROCHLORIDE [Suspect]
     Active Substance: NOREPINEPHRINE HYDROCHLORIDE, (+/-)-
     Dosage: UNK
  5. VASOPRESSIN. [Suspect]
     Active Substance: VASOPRESSIN
     Dosage: UNK

REACTIONS (16)
  - Necrosis [Recovering/Resolving]
  - Shock [Recovering/Resolving]
  - Wernicke-Korsakoff syndrome [Recovering/Resolving]
  - Ventricular tachycardia [Recovering/Resolving]
  - Septic shock [Recovering/Resolving]
  - Haemorrhage [Recovering/Resolving]
  - Vital functions abnormal [Recovering/Resolving]
  - Thrombosis [Recovering/Resolving]
  - Cyanosis [Recovering/Resolving]
  - Electrocardiogram ST segment elevation [Recovering/Resolving]
  - Haemoglobin decreased [Recovering/Resolving]
  - Myocardial necrosis [Recovering/Resolving]
  - Acute myocardial infarction [Recovering/Resolving]
  - Peripheral coldness [Recovering/Resolving]
  - Ischaemia [Recovering/Resolving]
  - Cognitive disorder [Not Recovered/Not Resolved]
